FAERS Safety Report 15363608 (Version 1)
Quarter: 2018Q4

REPORT INFORMATION
  Report Type: Other
  Country: IN (occurrence: IN)
  Receive Date: 20180907
  Receipt Date: 20180907
  Transmission Date: 20190204
  Serious: Yes (Death)
  Sender: FDA-Public Use
  Company Number: IN-LEADING PHARMA, LLC-2054756

PATIENT
  Age: 21 Year
  Sex: Male

DRUGS (1)
  1. IMIPRAMINE HYDROCHLORIDE. [Suspect]
     Active Substance: IMIPRAMINE HYDROCHLORIDE

REACTIONS (2)
  - Drug interaction [Fatal]
  - Electrocardiogram QT prolonged [Fatal]
